FAERS Safety Report 5448968-9 (Version None)
Quarter: 2007Q3

REPORT INFORMATION
  Report Type: 
  Country: None (occurrence: None)
  Receive Date: 20070911
  Receipt Date: 20070905
  Transmission Date: 20080115
  Serious: Yes (Hospitalization)
  Sender: FDA-Public Use
  Company Number: US-MERCK-0709USA00656

PATIENT
  Age: 60 Year
  Sex: Male

DRUGS (7)
  1. ZOLINZA [Suspect]
     Indication: MYCOSIS FUNGOIDES
     Route: 048
  2. TARGRETIN [Concomitant]
     Route: 065
  3. COUMADIN [Concomitant]
     Route: 065
  4. [THERAPY UNSPECIFIED] [Concomitant]
     Indication: ANTIDEPRESSANT THERAPY
     Route: 065
  5. RITALIN [Concomitant]
     Route: 065
  6. MEGACE [Concomitant]
     Route: 065
  7. [THERAPY UNSPECIFIED] [Concomitant]
     Indication: BLOOD CHOLESTEROL
     Route: 065

REACTIONS (2)
  - BLOOD URINE PRESENT [None]
  - HAEMORRHAGE [None]
